FAERS Safety Report 14571257 (Version 2)
Quarter: 2018Q1

REPORT INFORMATION
  Report Type: Report from Study
  Country: US (occurrence: US)
  Receive Date: 20180226
  Receipt Date: 20180313
  Transmission Date: 20180509
  Serious: Yes (Hospitalization)
  Sender: FDA-Public Use
  Company Number: PHEH2018US007063

PATIENT
  Age: 56 Year
  Sex: Female
  Weight: 85.72 kg

DRUGS (3)
  1. TEGRETOL [Suspect]
     Active Substance: CARBAMAZEPINE
     Dosage: 600 MG, UNK
     Route: 048
     Dates: start: 20180228
  2. ABILIFY [Concomitant]
     Active Substance: ARIPIPRAZOLE
     Indication: BIPOLAR DISORDER
     Dosage: 30 MG, UNK
     Route: 048
     Dates: start: 20180228
  3. TEGRETOL [Suspect]
     Active Substance: CARBAMAZEPINE
     Indication: BIPOLAR DISORDER
     Dosage: 200 MG, UNK
     Route: 048
     Dates: start: 20170228

REACTIONS (3)
  - Delusion [Recovering/Resolving]
  - Mania [Not Recovered/Not Resolved]
  - Peripheral swelling [Unknown]

NARRATIVE: CASE EVENT DATE: 20171203
